FAERS Safety Report 18562936 (Version 1)
Quarter: 2020Q4

REPORT INFORMATION
  Report Type: Spontaneous
  Country: US (occurrence: US)
  Receive Date: 20201130
  Receipt Date: 20201130
  Transmission Date: 20210114
  Serious: No
  Sender: FDA-Public Use
  Company Number: US-ROCHE-2620885

PATIENT
  Sex: Female

DRUGS (1)
  1. LUCENTIS [Suspect]
     Active Substance: RANIBIZUMAB
     Indication: RETINAL HAEMORRHAGE
     Route: 050

REACTIONS (6)
  - Lacrimation increased [Unknown]
  - Erythema [Unknown]
  - Nasal congestion [Unknown]
  - Off label use [Unknown]
  - Swelling of eyelid [Unknown]
  - Intentional product use issue [Unknown]
